FAERS Safety Report 10273261 (Version 1)
Quarter: 2014Q2

REPORT INFORMATION
  Report Type: Spontaneous
  Country: US (occurrence: None)
  Receive Date: 20140630
  Receipt Date: 20140630
  Transmission Date: 20141212
  Serious: Yes (Hospitalization)
  Sender: FDA-Public Use
  Company Number: None

PATIENT
  Age: 2 Year
  Sex: Female
  Weight: 12 kg

DRUGS (3)
  1. PEG-L-ASPARAGINASE (PEGASPARGASE, ONCOSPAR) [Suspect]
     Dates: end: 20140510
  2. METHOTREXATE [Suspect]
     Dates: end: 20140625
  3. VINCRISTINE [Suspect]
     Dates: end: 20140625

REACTIONS (2)
  - Hypotension [None]
  - Loss of consciousness [None]
